FAERS Safety Report 13083725 (Version 3)
Quarter: 2017Q1

REPORT INFORMATION
  Report Type: Spontaneous
  Country: DK (occurrence: DK)
  Receive Date: 20170104
  Receipt Date: 20170127
  Transmission Date: 20170428
  Serious: Yes (Other)
  Sender: FDA-Public Use
  Company Number: DK-AUROBINDO-AUR-APL-2017-00062

PATIENT
  Sex: Male

DRUGS (3)
  1. SERTRALINE 50MG [Suspect]
     Active Substance: SERTRALINE HYDROCHLORIDE
     Dosage: 100 MG, UNK
     Route: 065
     Dates: start: 201503, end: 2016
  2. SERTRALINE 50MG [Suspect]
     Active Substance: SERTRALINE HYDROCHLORIDE
     Indication: DEPRESSION
     Dosage: 50 MG, UNK
     Route: 065
     Dates: start: 2013, end: 201503
  3. QUETIAPINE. [Concomitant]
     Active Substance: QUETIAPINE
     Indication: INSOMNIA
     Dosage: 25 MG, UNK
     Route: 065
     Dates: start: 2015

REACTIONS (24)
  - Nervous system disorder [Not Recovered/Not Resolved]
  - Language disorder [Not Recovered/Not Resolved]
  - Toxicity to various agents [Unknown]
  - Erection increased [Unknown]
  - Tremor [Unknown]
  - Lipids increased [Unknown]
  - Musculoskeletal disorder [Unknown]
  - Asthenia [Unknown]
  - Fear of death [Not Recovered/Not Resolved]
  - Insomnia [Unknown]
  - Aggression [Not Recovered/Not Resolved]
  - Blood cholesterol increased [Unknown]
  - Learning disorder [Unknown]
  - Brain injury [Unknown]
  - Suicide attempt [Not Recovered/Not Resolved]
  - Anxiety [Not Recovered/Not Resolved]
  - Depression [Not Recovered/Not Resolved]
  - Anaemia [Unknown]
  - Somnolence [Unknown]
  - Dizziness [Unknown]
  - Stress [Not Recovered/Not Resolved]
  - Thinking abnormal [Not Recovered/Not Resolved]
  - Headache [Unknown]
  - Painful erection [Unknown]
